FAERS Safety Report 6635216-7 (Version None)
Quarter: 2010Q1

REPORT INFORMATION
  Report Type: 
  Country: None (occurrence: None)
  Receive Date: 20100315
  Receipt Date: 20100303
  Transmission Date: 20100710
  Serious: Yes (Death, Other)
  Sender: FDA-Public Use
  Company Number: US-PFIZER INC-2009306107

PATIENT
  Sex: Male
  Weight: 68.934 kg

DRUGS (12)
  1. XALATAN [Suspect]
     Indication: INTRAOCULAR PRESSURE INCREASED
     Dosage: 1 GTT, 2X/DAY
     Route: 047
     Dates: start: 20080101
  2. XALATAN [Suspect]
     Indication: PROPHYLAXIS
  3. BROMFENAC [Concomitant]
     Dosage: UNK
     Route: 047
  4. WARFARIN SODIUM [Concomitant]
     Dosage: UNK
  5. CARVEDILOL [Concomitant]
     Dosage: UNK
  6. FUROSEMIDE [Concomitant]
     Dosage: UNK
  7. CITALOPRAM [Concomitant]
     Dosage: UNK
  8. SPIRONOLACTONE [Concomitant]
     Dosage: UNK
  9. PREDNISONE [Concomitant]
     Dosage: UNK
  10. SIMVASTATIN [Concomitant]
     Dosage: UNK
  11. VITAMINS [Concomitant]
     Dosage: UNK
  12. ASCORBIC ACID/COPPER/RETINOL/TOCOPHEROL/ZINC [Concomitant]
     Dosage: UNK

REACTIONS (3)
  - CARDIAC FAILURE [None]
  - DRUG DOSE OMISSION [None]
  - VISUAL FIELD DEFECT [None]
